FAERS Safety Report 4261826-0 (Version None)
Quarter: 2004Q1

REPORT INFORMATION
  Report Type: 
  Country: None (occurrence: None)
  Receive Date: 20040102
  Receipt Date: 20031215
  Transmission Date: 20041129
  Serious: Yes (Hospitalization)
  Sender: FDA-Public Use
  Company Number: 200314768FR

PATIENT
  Age: 71 Year
  Sex: Male
  Weight: 110 kg

DRUGS (7)
  1. TAXOTERE [Suspect]
     Indication: OESOPHAGEAL CARCINOMA
     Dates: start: 20031001, end: 20031101
  2. BETATOP [Suspect]
     Indication: HYPERTENSION
  3. PREVISCAN [Concomitant]
     Indication: ATRIAL FIBRILLATION
  4. MOPRAL [Suspect]
     Indication: OESOPHAGITIS
  5. BETA BLOCKING AGENTS [Concomitant]
  6. VIT K ANTAGONISTS [Concomitant]
  7. MOPRAL [Concomitant]

REACTIONS (3)
  - CUTANEOUS VASCULITIS [None]
  - FEBRILE NEUTROPENIA [None]
  - RENAL VASCULITIS [None]
